FAERS Safety Report 7624442-6 (Version None)
Quarter: 2011Q3

REPORT INFORMATION
  Report Type: 
  Country: None (occurrence: None)
  Receive Date: 20110720
  Receipt Date: 20110713
  Transmission Date: 20111222
  Serious: Yes (Other)
  Sender: FDA-Public Use
  Company Number: NZ-BAYER-2011-060562

PATIENT
  Sex: Female

DRUGS (1)
  1. BETASERON [Suspect]
     Indication: MULTIPLE SCLEROSIS
     Dosage: UNK
     Dates: start: 20110501, end: 20110601

REACTIONS (4)
  - DYSPNOEA [None]
  - MUTISM [None]
  - APHAGIA [None]
  - ASTHENIA [None]
